FAERS Safety Report 7706159-2 (Version None)
Quarter: 2011Q3

REPORT INFORMATION
  Report Type: 
  Country: None (occurrence: None)
  Receive Date: 20110824
  Receipt Date: 20110812
  Transmission Date: 20111222
  Serious: Yes (Hospitalization)
  Sender: FDA-Public Use
  Company Number: DK-NOVOPROD-333645

PATIENT

DRUGS (5)
  1. METFORMIN HCL [Concomitant]
  2. ENALAPRIL MALEATE [Concomitant]
  3. INSULATARD NPH HUMAN [Suspect]
     Indication: TYPE 2 DIABETES MELLITUS
     Dosage: 9 IU +11 IU
     Route: 065
  4. VICTOZA [Suspect]
     Indication: TYPE 2 DIABETES MELLITUS
     Dosage: UNK
     Route: 065
  5. RAMIPRIL [Concomitant]

REACTIONS (2)
  - INFECTION [None]
  - PAINFUL RESPIRATION [None]
